FAERS Safety Report 8955921 (Version 3)
Quarter: 2013Q1

REPORT INFORMATION
  Report Type: Report from Study
  Country: US (occurrence: US)
  Receive Date: 20121210
  Receipt Date: 20130111
  Transmission Date: 20140127
  Serious: Yes (Hospitalization)
  Sender: FDA-Public Use
  Company Number: US-JNJFOC-20121203224

PATIENT
  Age: 14 Year
  Sex: Female
  Weight: 44.7 kg

DRUGS (13)
  1. REMICADE [Suspect]
     Indication: CROHN^S DISEASE
     Route: 042
     Dates: start: 20081004
  2. REMICADE [Suspect]
     Indication: CROHN^S DISEASE
     Route: 042
     Dates: start: 20120906
  3. REMICADE [Suspect]
     Indication: CROHN^S DISEASE
     Route: 042
     Dates: start: 20121016
  4. REMICADE [Suspect]
     Indication: CROHN^S DISEASE
     Route: 042
     Dates: start: 20120703, end: 20121108
  5. HUMIRA [Concomitant]
     Dates: start: 200906, end: 201206
  6. 6-MERCAPTOPURINE [Concomitant]
  7. ALL OTHER THERAPEUTIC AGENTS [Concomitant]
  8. ANTIBIOTICS FOR IBD [Concomitant]
  9. CHOLECALCIFEROL [Concomitant]
  10. PEPTAMEN [Concomitant]
  11. ZOSYN [Concomitant]
  12. PREDNISONE [Concomitant]
  13. IBUPROFEN [Concomitant]

REACTIONS (1)
  - Crohn^s disease [Recovered/Resolved]
